FAERS Safety Report 6853516-2 (Version None)
Quarter: 2010Q3

REPORT INFORMATION
  Report Type: 
  Country: None (occurrence: None)
  Receive Date: 20100717
  Receipt Date: 20071227
  Transmission Date: 20110219
  Serious: No
  Sender: FDA-Public Use
  Company Number: US-PFIZER INC-2007102322

PATIENT
  Sex: Female
  Weight: 71.4 kg

DRUGS (8)
  1. CHANTIX [Suspect]
     Indication: SMOKING CESSATION THERAPY
     Dates: start: 20071101, end: 20071201
  2. EFFEXOR [Concomitant]
     Indication: DEPRESSION
  3. LISINOPRIL [Concomitant]
     Indication: HYPERTENSION
  4. FLEXERIL [Concomitant]
  5. TOPAMAX [Concomitant]
  6. XANAX [Concomitant]
  7. HYDROCODONE [Concomitant]
  8. REQUIP [Concomitant]

REACTIONS (6)
  - ANGER [None]
  - DRY MOUTH [None]
  - GLOSSODYNIA [None]
  - INCORRECT DOSE ADMINISTERED [None]
  - MOOD SWINGS [None]
  - TONGUE DISORDER [None]
